FAERS Safety Report 7942664-1 (Version None)
Quarter: 2011Q4

REPORT INFORMATION
  Report Type: 
  Country: None (occurrence: None)
  Receive Date: 20111128
  Receipt Date: 20111116
  Transmission Date: 20120403
  Serious: Yes (Other)
  Sender: FDA-Public Use
  Company Number: US-UCBSA-024031

PATIENT
  Age: 36 Year
  Sex: Female

DRUGS (5)
  1. ZOLPIDEM [Concomitant]
     Indication: SEDATIVE THERAPY
  2. FLORAJEN 3 [Concomitant]
     Indication: PROBIOTIC THERAPY
     Dosage: 2-3 TABLET
  3. MULTI-VITAMIN [Concomitant]
     Indication: VITAMIN SUPPLEMENTATION
     Dosage: 1 TABLET
  4. PREDNISONE TAB [Concomitant]
     Indication: ANTIINFLAMMATORY THERAPY
  5. CIMZIA [Suspect]
     Indication: CROHN'S DISEASE
     Route: 058
     Dates: start: 20100812

REACTIONS (2)
  - PREGNANCY [None]
  - ABORTION SPONTANEOUS [None]
